FAERS Safety Report 11525695 (Version 1)
Quarter: 2015Q3

REPORT INFORMATION
  Report Type: Report from Study
  Country: US (occurrence: US)
  Receive Date: 20150918
  Receipt Date: 20150918
  Transmission Date: 20151125
  Serious: Yes (Other)
  Sender: FDA-Public Use
  Company Number: US-GILEAD-2015-0172123

PATIENT
  Sex: Female

DRUGS (1)
  1. SOFOSBUVIR [Suspect]
     Active Substance: SOFOSBUVIR
     Indication: HEPATITIS C
     Dosage: 1 DF, QD
     Route: 048
     Dates: start: 201408, end: 201410

REACTIONS (6)
  - Headache [Unknown]
  - Vision blurred [Unknown]
  - Suicidal ideation [Unknown]
  - Tremor [Unknown]
  - Depression [Unknown]
  - Rash [Unknown]
